FAERS Safety Report 14852862 (Version 1)
Quarter: 2018Q2

REPORT INFORMATION
  Report Type: Spontaneous
  Country: ES (occurrence: ES)
  Receive Date: 20180507
  Receipt Date: 20180507
  Transmission Date: 20180711
  Serious: Yes (Hospitalization, Other)
  Sender: FDA-Public Use
  Company Number: ES-ACCORD-066516

PATIENT
  Age: 78 Year
  Sex: Male

DRUGS (3)
  1. MEROPENEM. [Interacting]
     Active Substance: MEROPENEM
     Indication: PYREXIA
     Route: 042
     Dates: start: 20171002, end: 20171010
  2. ERTAPENEM/ERTAPENEM SODIUM [Interacting]
     Active Substance: ERTAPENEM
     Indication: PYREXIA
     Route: 042
     Dates: start: 20170929, end: 20171002
  3. QUETIAPINE. [Suspect]
     Active Substance: QUETIAPINE
     Indication: AGITATION
     Route: 048
     Dates: start: 20170928, end: 20171003

REACTIONS (2)
  - Drug interaction [Unknown]
  - Encephalopathy [Recovered/Resolved]

NARRATIVE: CASE EVENT DATE: 20171002
